FAERS Safety Report 22345409 (Version 2)
Quarter: 2023Q2

REPORT INFORMATION
  Report Type: Spontaneous
  Country: US (occurrence: US)
  Receive Date: 20230519
  Receipt Date: 20230605
  Transmission Date: 20230722
  Serious: No
  Sender: FDA-Public Use
  Company Number: US-Calliditas-2023CAL00467

PATIENT
  Age: 58 Year
  Sex: Male

DRUGS (6)
  1. TARPEYO [Suspect]
     Active Substance: BUDESONIDE
     Indication: IgA nephropathy
     Dosage: 16 MG (4 MG CAPSULES) ONCE DAILY
     Route: 048
     Dates: start: 20230401, end: 20230425
  2. TARPEYO [Suspect]
     Active Substance: BUDESONIDE
     Indication: IgA nephropathy
     Dosage: 8 MG (4 MG CAPSULES) ONCE DAILY
     Route: 048
     Dates: start: 20230426, end: 20230504
  3. HUMIRA [Concomitant]
     Active Substance: ADALIMUMAB
  4. FOLIC ACID [Concomitant]
     Active Substance: FOLIC ACID
  5. LOSARTAN [Concomitant]
     Active Substance: LOSARTAN
  6. NIFEDIPINE [Concomitant]
     Active Substance: NIFEDIPINE

REACTIONS (6)
  - Blood pressure increased [Recovered/Resolved]
  - Abdominal discomfort [Unknown]
  - Irritability [Unknown]
  - Insomnia [Unknown]
  - Increased appetite [Unknown]
  - Candida infection [Unknown]

NARRATIVE: CASE EVENT DATE: 20230426
